FAERS Safety Report 19665861 (Version 1)
Quarter: 2021Q3

REPORT INFORMATION
  Report Type: Spontaneous
  Country: US (occurrence: US)
  Receive Date: 20210805
  Receipt Date: 20210805
  Transmission Date: 20211014
  Serious: Yes (Other)
  Sender: FDA-Public Use
  Company Number: None

PATIENT
  Sex: Male

DRUGS (1)
  1. GLIMEPIRIDE 4MG [Suspect]
     Active Substance: GLIMEPIRIDE

REACTIONS (1)
  - Drug ineffective [None]
